FAERS Safety Report 5914645-0 (Version None)
Quarter: 2008Q4

REPORT INFORMATION
  Report Type: 
  Country: None (occurrence: None)
  Receive Date: 20081010
  Receipt Date: 20080930
  Transmission Date: 20090506
  Serious: Yes (Hospitalization)
  Sender: FDA-Public Use
  Company Number: BE-ABBOTT-08P-013-0470360-00

PATIENT
  Sex: Female

DRUGS (1)
  1. HUMIRA [Suspect]
     Indication: RHEUMATOID ARTHRITIS
     Dates: start: 20060322, end: 20080801

REACTIONS (4)
  - CALCIFICATION OF MUSCLE [None]
  - NERVE INJURY [None]
  - PAIN [None]
  - PERIARTHRITIS [None]
